FAERS Safety Report 7135055-7 (Version None)
Quarter: 2010Q4

REPORT INFORMATION
  Report Type: 
  Country: None (occurrence: None)
  Receive Date: 20101203
  Receipt Date: 20101123
  Transmission Date: 20110411
  Serious: Yes (Hospitalization)
  Sender: FDA-Public Use
  Company Number: PHHO2010FR17770

PATIENT
  Sex: Female
  Weight: 71 kg

DRUGS (6)
  1. MYCOPHENOLIC ACID [Suspect]
     Indication: RENAL TRANSPLANT
     Dosage: 1440 MG
     Route: 048
     Dates: start: 20100818, end: 20101116
  2. NEORAL [Suspect]
     Indication: RENAL TRANSPLANT
     Dosage: 200 MG
     Route: 048
     Dates: start: 20100819
  3. CORTANCYL [Suspect]
     Indication: RENAL TRANSPLANT
     Dosage: 5 MG
     Route: 048
     Dates: start: 20100819
  4. RANITIDINE HCL [Suspect]
     Indication: PROPHYLAXIS AGAINST GASTROINTESTINAL ULCER
     Dosage: 150 MG
     Dates: start: 20100818, end: 20101116
  5. ROVALCYTE [Suspect]
     Indication: ANTIVIRAL PROPHYLAXIS
     Dosage: 450 MG
     Dates: start: 20100826, end: 20101116
  6. BACTRIM [Suspect]
     Indication: ANTIFUNGAL PROPHYLAXIS
     Dosage: 400 MG
     Dates: start: 20100822, end: 20101116

REACTIONS (1)
  - AGRANULOCYTOSIS [None]
